FAERS Safety Report 15783287 (Version 1)
Quarter: 2019Q1

REPORT INFORMATION
  Report Type: Spontaneous
  Country: US (occurrence: US)
  Receive Date: 20190102
  Receipt Date: 20190102
  Transmission Date: 20190417
  Serious: Yes (Other)
  Sender: FDA-Public Use
  Company Number: US-PFIZER INC-2018534390

PATIENT
  Age: 63 Year
  Sex: Female

DRUGS (1)
  1. METHOTREXATE SODIUM. [Suspect]
     Active Substance: METHOTREXATE SODIUM
     Dosage: 25 MG, WEEKLY

REACTIONS (7)
  - Musculoskeletal stiffness [Unknown]
  - Fatigue [Unknown]
  - Arthralgia [Unknown]
  - Arthritis [Unknown]
  - Cellulitis [Unknown]
  - Arthropathy [Unknown]
  - Injection site reaction [Unknown]
